FAERS Safety Report 14571178 (Version 10)
Quarter: 2019Q2

REPORT INFORMATION
  Report Type: Report from Study
  Country: US (occurrence: US)
  Receive Date: 20180226
  Receipt Date: 20190619
  Transmission Date: 20190711
  Serious: Yes (Other)
  Sender: FDA-Public Use
  Company Number: US-TESARO, INC-US-2017TSO00424

PATIENT
  Age: 62 Year
  Sex: Female
  Weight: 64.4 kg

DRUGS (4)
  1. ZEJULA [Suspect]
     Active Substance: NIRAPARIB
     Dosage: 100 MG, QPM WIHTOUT FOOD
     Route: 048
     Dates: start: 20180808
  2. PROMETHAZINE [Concomitant]
     Active Substance: PROMETHAZINE\PROMETHAZINE HYDROCHLORIDE
     Indication: PRODUCT USED FOR UNKNOWN INDICATION
     Dosage: UNK
  3. ZEJULA [Suspect]
     Active Substance: NIRAPARIB
     Indication: ENDOMETRIAL CANCER
     Dosage: 300 MG, QD
     Route: 048
     Dates: start: 20170512
  4. ZEJULA [Suspect]
     Active Substance: NIRAPARIB
     Indication: OVARIAN CANCER
     Dosage: 100 MG, QD
     Route: 048
     Dates: start: 20180301, end: 20180722

REACTIONS (30)
  - Pain in extremity [Not Recovered/Not Resolved]
  - Pain [Unknown]
  - Hypokalaemia [Not Recovered/Not Resolved]
  - Varicose vein [Not Recovered/Not Resolved]
  - Memory impairment [Not Recovered/Not Resolved]
  - Pulmonary mass [Not Recovered/Not Resolved]
  - Endometriosis [Not Recovered/Not Resolved]
  - Gastric disorder [Not Recovered/Not Resolved]
  - Hypertension [Recovering/Resolving]
  - Fatigue [Recovering/Resolving]
  - Atrophic vulvovaginitis [Not Recovered/Not Resolved]
  - Emotional distress [Unknown]
  - Nausea [Not Recovered/Not Resolved]
  - Neuropathy peripheral [Not Recovered/Not Resolved]
  - Arthritis [Not Recovered/Not Resolved]
  - Eastern Cooperative Oncology Group performance status [Unknown]
  - Insomnia [Not Recovered/Not Resolved]
  - Condition aggravated [Not Recovered/Not Resolved]
  - Diarrhoea [Recovered/Resolved]
  - Renal impairment [Not Recovered/Not Resolved]
  - Arthralgia [Not Recovered/Not Resolved]
  - Carbohydrate antigen 125 increased [Unknown]
  - Myalgia [Not Recovered/Not Resolved]
  - Peripheral venous disease [Not Recovered/Not Resolved]
  - Colostomy closure [Unknown]
  - Thinking abnormal [Not Recovered/Not Resolved]
  - Underdose [Unknown]
  - Neoplasm [Unknown]
  - Ill-defined disorder [Unknown]
  - Peripheral swelling [Recovered/Resolved]

NARRATIVE: CASE EVENT DATE: 201705
